FAERS Safety Report 9678550 (Version 3)
Quarter: 2013Q4

REPORT INFORMATION
  Report Type: Spontaneous
  Country: US (occurrence: US)
  Receive Date: 20131108
  Receipt Date: 20131213
  Transmission Date: 20140711
  Serious: Yes (Death, Other)
  Sender: FDA-Public Use
  Company Number: US-OTSUKA-US-2013-12070

PATIENT
  Age: 39 Year
  Sex: Female
  Weight: 42 kg

DRUGS (3)
  1. SAMSCA [Suspect]
     Indication: HYPONATRAEMIA
     Dosage: 30 MG MILLIGRAM(S), QD
     Dates: start: 20130317, end: 20130318
  2. NORMAL SALINE [Concomitant]
     Indication: PRODUCT USED FOR UNKNOWN INDICATION
     Dosage: 150 ML/HR
     Dates: start: 20130316
  3. HYPERTONIC SOLUTIONS [Concomitant]
     Indication: PRODUCT USED FOR UNKNOWN INDICATION
     Dosage: 30 ML/HR
     Dates: start: 20130316

REACTIONS (18)
  - Death [Fatal]
  - Rapid correction of hyponatraemia [Unknown]
  - Brain oedema [Unknown]
  - Coma [Unknown]
  - Convulsion [Unknown]
  - Blood glucose decreased [Unknown]
  - Pyrexia [Unknown]
  - Blood glucose increased [Unknown]
  - Polyuria [Unknown]
  - Asthenia [Unknown]
  - Syncope [Unknown]
  - Blood bicarbonate decreased [Unknown]
  - Anuria [Unknown]
  - Hypokinesia [Unknown]
  - Speech disorder [Unknown]
  - Dysphagia [Unknown]
  - Coordination abnormal [Unknown]
  - Hypoxia [Unknown]
